FAERS Safety Report 17519151 (Version 1)
Quarter: 2020Q1

REPORT INFORMATION
  Report Type: Report from Study
  Country: FR (occurrence: FR)
  Receive Date: 20200310
  Receipt Date: 20200310
  Transmission Date: 20200409
  Serious: Yes (Hospitalization)
  Sender: FDA-Public Use
  Company Number: FR-ROCHE-2312080

PATIENT
  Age: 73 Year
  Sex: Male
  Weight: 85 kg

DRUGS (7)
  1. OBINUTUZUMAB. [Suspect]
     Active Substance: OBINUTUZUMAB
     Indication: B-CELL LYMPHOMA
     Dosage: LAST DOSE OF OBINUTUZUMAB (1000 MG) PRIOR TO SERIOUS ADVERSE EVENT (SAE) ONSET ON 23/APR/2019?ON DAY
     Route: 065
     Dates: start: 20181126
  2. SULFAMETHOXAZOLE [Concomitant]
     Active Substance: SULFAMETHOXAZOLE
     Route: 065
     Dates: start: 20181126
  3. VALACICLOVIR [Concomitant]
     Active Substance: VALACYCLOVIR HYDROCHLORIDE
     Route: 065
     Dates: start: 20181126
  4. VENETOCLAX. [Suspect]
     Active Substance: VENETOCLAX
     Indication: B-CELL LYMPHOMA
     Dosage: LAST DOSE OF VENETOCLAX (100 MG) PRIOR TO SERIOUS ADVERSE EVENT (SAE) ONSET ON 23/APR/2019
     Route: 065
     Dates: start: 20181217
  5. METFORMIN EMBONATE [Concomitant]
     Indication: DIABETES MELLITUS
     Route: 065
     Dates: start: 2014
  6. VENLAFAXINE [Concomitant]
     Active Substance: VENLAFAXINE HYDROCHLORIDE
     Indication: ANXIETY
     Route: 065
     Dates: start: 20181204
  7. ATEZOLIZUMAB. [Suspect]
     Active Substance: ATEZOLIZUMAB
     Indication: B-CELL LYMPHOMA
     Dosage: LAST DOSE OF ATEZOLIZUMAB PRIOR TO SERIOUS ADVERSE EVENT (SAE) ONSET ON 24/APR/2019?ON DAY 2 OF EACH
     Route: 041
     Dates: start: 20181127

REACTIONS (1)
  - Immune-mediated enterocolitis [Recovered/Resolved]

NARRATIVE: CASE EVENT DATE: 20190501
